FAERS Safety Report 19396247 (Version 2)
Quarter: 2021Q4

REPORT INFORMATION
  Report Type: Report from Study
  Country: DE (occurrence: DE)
  Receive Date: 20210609
  Receipt Date: 20211220
  Transmission Date: 20220303
  Serious: Yes (Death, Life-Threatening)
  Sender: FDA-Public Use
  Company Number: DE-JNJFOC-20190517832

PATIENT
  Age: 8 Decade
  Sex: Male
  Weight: 76 kg

DRUGS (5)
  1. TRABECTEDIN [Suspect]
     Active Substance: TRABECTEDIN
     Indication: Leiomyosarcoma metastatic
     Dosage: CYCLE 1-2
     Route: 042
     Dates: start: 20190329, end: 20190430
  2. AMLODIPINE [Concomitant]
     Active Substance: AMLODIPINE BESYLATE
     Indication: Illness
     Dates: start: 20171108, end: 20190519
  3. METOPROLOL SUCCINATE [Concomitant]
     Active Substance: METOPROLOL SUCCINATE
     Indication: Illness
     Dates: start: 20171108, end: 20190519
  4. SIMVASTATIN [Concomitant]
     Active Substance: SIMVASTATIN
     Indication: Illness
     Dates: start: 20171108, end: 20190519
  5. RIVAROXABAN [Concomitant]
     Active Substance: RIVAROXABAN
     Indication: Illness
     Dates: start: 20171108, end: 20190519

REACTIONS (2)
  - Neutropenic sepsis [Fatal]
  - Acute kidney injury [Not Recovered/Not Resolved]

NARRATIVE: CASE EVENT DATE: 20190512
